FAERS Safety Report 6396318-6 (Version None)
Quarter: 2009Q4

REPORT INFORMATION
  Report Type: 
  Country: None (occurrence: None)
  Receive Date: 20091012
  Receipt Date: 20091005
  Transmission Date: 20100525
  Serious: Yes (Hospitalization)
  Sender: FDA-Public Use
  Company Number: US-TEVA-211415USA

PATIENT
  Sex: Female
  Weight: 1.428 kg

DRUGS (1)
  1. PLAN B [Suspect]
     Route: 064
     Dates: start: 20090107, end: 20090107

REACTIONS (2)
  - PREMATURE BABY [None]
  - SMALL FOR DATES BABY [None]
